FAERS Safety Report 10632362 (Version 1)
Quarter: 2014Q4

REPORT INFORMATION
  Report Type: Spontaneous
  Country: US (occurrence: US)
  Receive Date: 20141205
  Receipt Date: 20141205
  Transmission Date: 20150529
  Serious: No
  Sender: FDA-Public Use
  Company Number: US-BRISTOL-MYERS SQUIBB COMPANY-21234067

PATIENT
  Age: 63 Year
  Sex: Female

DRUGS (1)
  1. ORENCIA [Suspect]
     Active Substance: ABATACEPT
     Indication: RHEUMATOID ARTHRITIS
     Dosage: 1 DF = 125MG/ML?25NOV13-25APR14?RESTARTED:30JUN2014.
     Route: 058
     Dates: start: 20131125

REACTIONS (2)
  - Skin disorder [Unknown]
  - Leukoplakia oral [Unknown]

NARRATIVE: CASE EVENT DATE: 20140201
